FAERS Safety Report 4263113-3 (Version None)
Quarter: 2004Q1

REPORT INFORMATION
  Report Type: 
  Country: None (occurrence: None)
  Receive Date: 20040102
  Receipt Date: 20040102
  Transmission Date: 20041129
  Serious: No
  Sender: FDA-Public Use
  Company Number: None

PATIENT
  Age: 52 Year
  Sex: Female

DRUGS (1)
  1. NEFAZODONE HCL [Suspect]
     Indication: DEPRESSION
     Dosage: 200 MG PO BID
     Route: 048
     Dates: start: 20031205, end: 20031206

REACTIONS (2)
  - NAUSEA [None]
  - VOMITING [None]
